FAERS Safety Report 7928511-2 (Version None)
Quarter: 2011Q4

REPORT INFORMATION
  Report Type: 
  Country: None (occurrence: None)
  Receive Date: 20111118
  Receipt Date: 20111108
  Transmission Date: 20120403
  Serious: Yes (Hospitalization)
  Sender: FDA-Public Use
  Company Number: US-ELI_LILLY_AND_COMPANY-US201108003608

PATIENT
  Sex: Male

DRUGS (5)
  1. FLUOXETINE [Concomitant]
  2. ZYPREXA [Suspect]
     Indication: SCHIZOPHRENIA
     Dosage: 40 MG, QD
  3. LEXAPRO [Concomitant]
  4. ZYPREXA RELPREVV [Suspect]
     Indication: SCHIZOPHRENIA
     Dosage: 405 MG, MONTHLY
     Route: 030
     Dates: start: 20110406, end: 20110630
  5. ZYPREXA [Suspect]
     Indication: SCHIZOPHRENIA
     Dosage: 15MG NIGHTLY
     Dates: start: 20090502, end: 20110524

REACTIONS (6)
  - WEIGHT DECREASED [None]
  - MAJOR DEPRESSION [None]
  - DISTURBANCE IN SOCIAL BEHAVIOUR [None]
  - HALLUCINATION, AUDITORY [None]
  - OVERDOSE [None]
  - DECREASED APPETITE [None]
